FAERS Safety Report 7387623-5 (Version None)
Quarter: 2011Q1

REPORT INFORMATION
  Report Type: 
  Country: None (occurrence: None)
  Receive Date: 20110331
  Receipt Date: 20110324
  Transmission Date: 20110831
  Serious: Yes (Other)
  Sender: FDA-Public Use
  Company Number: US-PFIZER INC-US-WYE-H14999210

PATIENT
  Sex: Female
  Weight: 53.1 kg

DRUGS (10)
  1. IRON [Concomitant]
  2. MULTIVITAMIN [Concomitant]
  3. PROTONIX [Suspect]
     Indication: OESOPHAGEAL DISORDER
     Dosage: WAS CUTING THE TABLETS IN HALF
     Route: 065
     Dates: start: 20091101
  4. GLYBURIDE [Suspect]
     Indication: DIABETES MELLITUS
     Dosage: 5 MG BID, PLUS 2.5 MG ONCE DAILY
     Route: 065
     Dates: end: 20100401
  5. AZITHROMYCIN [Suspect]
     Dosage: UNKNOWN
     Route: 065
  6. PROTONIX [Suspect]
     Indication: GASTROINTESTINAL HAEMORRHAGE
     Dosage: 40 MG, 1X/DAY
     Route: 048
     Dates: start: 20070101, end: 20091101
  7. GLYBURIDE [Suspect]
     Dosage: INCREASED TO 10 MG BID, PLUS 5 MG ONCE DAILY
     Route: 065
     Dates: start: 20100401
  8. NORVASC [Concomitant]
  9. METFORMIN HCL [Suspect]
     Dosage: 500 MG, 1X/DAY
     Route: 065
  10. BENICAR [Concomitant]

REACTIONS (10)
  - EPISTAXIS [None]
  - DISCOMFORT [None]
  - CHRONIC MYELOID LEUKAEMIA [None]
  - GENERAL PHYSICAL HEALTH DETERIORATION [None]
  - DRUG ADMINISTRATION ERROR [None]
  - DIABETES MELLITUS [None]
  - CONDITION AGGRAVATED [None]
  - BLOOD IRON DECREASED [None]
  - WEIGHT DECREASED [None]
  - BODY TEMPERATURE INCREASED [None]
